FAERS Safety Report 15559932 (Version 1)
Quarter: 2018Q4

REPORT INFORMATION
  Report Type: Spontaneous
  Country: CA (occurrence: CA)
  Receive Date: 20181022
  Receipt Date: 20181022
  Transmission Date: 20190205
  Serious: Yes (Hospitalization)
  Sender: FDA-Public Use
  Company Number: None

PATIENT
  Age: 6 Year
  Sex: Male
  Weight: 21.6 kg

DRUGS (4)
  1. METHOTREXATE. [Suspect]
     Active Substance: METHOTREXATE
     Dates: end: 20180928
  2. VINCRISTINE SULFATE. [Suspect]
     Active Substance: VINCRISTINE SULFATE
     Dates: end: 20180920
  3. MERCAPTOPURINE. [Suspect]
     Active Substance: MERCAPTOPURINE
     Dates: end: 20181004
  4. PREDNISONE. [Suspect]
     Active Substance: PREDNISONE
     Dates: end: 20180924

REACTIONS (9)
  - Catheter culture positive [None]
  - Atelectasis [None]
  - Blood culture positive [None]
  - Seizure [None]
  - Haemophilus infection [None]
  - Hypertension [None]
  - Pneumonia [None]
  - Neutrophil count decreased [None]
  - Meningitis [None]

NARRATIVE: CASE EVENT DATE: 20181005
